FAERS Safety Report 7500750-4 (Version None)
Quarter: 2011Q2

REPORT INFORMATION
  Report Type: 
  Country: None (occurrence: None)
  Receive Date: 20110524
  Receipt Date: 20110517
  Transmission Date: 20111010
  Serious: Yes (Hospitalization, Other)
  Sender: FDA-Public Use
  Company Number: BR-BRISTOL-MYERS SQUIBB COMPANY-15763311

PATIENT
  Age: 55 Year
  Sex: Female
  Weight: 70 kg

DRUGS (4)
  1. FLUDROCORTISONE ACETATE [Suspect]
     Route: 048
     Dates: start: 20100429
  2. SERTRALINE HYDROCHLORIDE [Suspect]
     Route: 048
     Dates: start: 20110310
  3. PREDNISONE TAB [Suspect]
     Route: 048
     Dates: start: 20100429
  4. MITOTANE [Suspect]
     Indication: ADENOCARCINOMA
     Route: 048
     Dates: start: 20100429

REACTIONS (4)
  - ABDOMINAL PAIN [None]
  - DIARRHOEA [None]
  - NAUSEA [None]
  - VOMITING [None]
